FAERS Safety Report 22625385 (Version 1)
Quarter: 2023Q2

REPORT INFORMATION
  Report Type: Spontaneous
  Country: ES (occurrence: ES)
  Receive Date: 20230621
  Receipt Date: 20230621
  Transmission Date: 20230722
  Serious: Yes (Hospitalization)
  Sender: FDA-Public Use
  Company Number: ES-AEMPS-1257568

PATIENT
  Age: 84 Year
  Sex: Female

DRUGS (13)
  1. SERTRALINE [Interacting]
     Active Substance: SERTRALINE HYDROCHLORIDE
     Indication: Product used for unknown indication
     Dosage: 1 DOSAGE FORM, QD
     Route: 048
     Dates: start: 20191009, end: 20211210
  2. DEFLAZACORT [Interacting]
     Active Substance: DEFLAZACORT
     Indication: Product used for unknown indication
     Dosage: 1 DOSAGE FORM, QD
     Route: 048
     Dates: start: 20211129, end: 20211210
  3. ALENDRONIC ACID [Interacting]
     Active Substance: ALENDRONIC ACID
     Indication: Product used for unknown indication
     Dosage: 1 CP
     Route: 048
     Dates: start: 20191023, end: 20211210
  4. SINTROM [Interacting]
     Active Substance: ACENOCOUMAROL
     Indication: Product used for unknown indication
     Dosage: 0.75 CP EVERY 24 HORAS
     Route: 048
     Dates: start: 20191230
  5. LEVOFLOXACIN [Interacting]
     Active Substance: LEVOFLOXACIN
     Indication: Product used for unknown indication
     Dosage: 1 CP CADA 24 HORAS
     Route: 048
     Dates: start: 20211129, end: 20211210
  6. EUTIROX  75 microgramos COMPRIMIDOS, 100 comprimidos [Concomitant]
     Indication: Product used for unknown indication
     Dosage: 1 CP CADA 24 HORAS
     Route: 048
     Dates: start: 20201111
  7. OMEPRAZOL GOBENS 20 MG CAPSULAS DURAS GASTRORRESISTENTES EFG, 28 c?psu [Concomitant]
     Indication: Product used for unknown indication
     Dosage: 1 CP CADA 24 HORAS
     Route: 048
     Dates: start: 20150410
  8. SIMVASTATINA CINFA 20 mg COMPRIMIDOS RECUBIERTOS CON PELICULA EFG, 28 [Concomitant]
     Indication: Product used for unknown indication
     Dosage: 1 CP CADA 24 HORAS
     Route: 048
     Dates: start: 20191108, end: 20220628
  9. DIUZINE 5 mg/50 mg COMPRIMIDOS, 60 comprimidos [Concomitant]
     Indication: Product used for unknown indication
     Dosage: 1 CP CADA 24 HORAS
     Route: 048
     Dates: start: 20201028, end: 20211210
  10. FUROSEMIDA UXA 40 MG COMPRIMIDOS EFG , 30 comprimidos [Concomitant]
     Indication: Product used for unknown indication
     Dosage: 1 CP CADA 12 HORAS
     Route: 048
     Dates: start: 20210812
  11. BISOPROLOL KERN PHARMA 2,5 MG COMPRIMIDOS EFG, 28 comprimidos (Blister [Concomitant]
     Indication: Product used for unknown indication
     Dosage: 1  CP CADA 12 HORAS
     Route: 048
     Dates: start: 20191108
  12. METFORMIN HYDROCHLORIDE [Concomitant]
     Active Substance: METFORMIN HYDROCHLORIDE
     Indication: Product used for unknown indication
     Dosage: 1 CP CADA 24 HORAS
     Route: 048
     Dates: start: 20190809
  13. DIGOXINA KERN PHARMA 0,25 mg COMPRIMIDOS , 50 comprimidos [Concomitant]
     Indication: Product used for unknown indication
     Dosage: 1 CP EVERY 24 HORAS
     Route: 048
     Dates: start: 20211129, end: 20211210

REACTIONS (5)
  - Anticoagulation drug level above therapeutic [Recovered/Resolved]
  - Dyspepsia [Recovered/Resolved]
  - Vomiting [Recovered/Resolved]
  - Acute kidney injury [Recovered/Resolved]
  - Gastritis [Recovering/Resolving]

NARRATIVE: CASE EVENT DATE: 20211207
